FAERS Safety Report 26059081 (Version 1)
Quarter: 2025Q4

REPORT INFORMATION
  Report Type: Spontaneous
  Country: US (occurrence: US)
  Receive Date: 20251118
  Receipt Date: 20251118
  Transmission Date: 20260118
  Serious: No
  Sender: COLLEGIUM PHARMACEUTICAL
  Company Number: US-COLLEGIUM PHARMACEUTICAL, INC.-20251002685

PATIENT

DRUGS (2)
  1. BELBUCA [Suspect]
     Active Substance: BUPRENORPHINE HYDROCHLORIDE
     Indication: Restless legs syndrome
     Dosage: 75 MICROGRAM, UNKNOWN
     Route: 002
     Dates: start: 202503, end: 2025
  2. BELBUCA [Suspect]
     Active Substance: BUPRENORPHINE HYDROCHLORIDE
     Dosage: 150 MICROGRAM, QD (AT 8:00 PM)
     Route: 002
     Dates: start: 2025

REACTIONS (5)
  - Therapeutic response decreased [Unknown]
  - Off label use [Not Recovered/Not Resolved]
  - Product use in unapproved indication [Not Recovered/Not Resolved]
  - Product solubility abnormal [None]
  - Product adhesion issue [None]

NARRATIVE: CASE EVENT DATE: 20250101
